FAERS Safety Report 11098265 (Version 2)
Quarter: 2015Q2

REPORT INFORMATION
  Report Type: Report from Study
  Country: KR (occurrence: KR)
  Receive Date: 20150507
  Receipt Date: 20150612
  Transmission Date: 20150821
  Serious: Yes (Hospitalization)
  Sender: FDA-Public Use
  Company Number: KR-OTSUKA PHARMACEUTICAL CO.-2015_000006

PATIENT
  Age: 81 Year
  Sex: Female

DRUGS (9)
  1. STILLEN [Concomitant]
     Indication: CEREBRAL INFARCTION
     Dosage: 2 DF, DAILY DOSE
     Route: 048
     Dates: start: 20130624
  2. BACLOFEN. [Concomitant]
     Active Substance: BACLOFEN
     Indication: CEREBRAL INFARCTION
     Dosage: 2 DF, DAILY DOSE
     Route: 048
     Dates: start: 20140418
  3. TRILEPTAL [Concomitant]
     Active Substance: OXCARBAZEPINE
     Indication: CEREBRAL INFARCTION
     Dosage: 1 DF, DAILY DOSE
     Route: 048
     Dates: start: 20140418
  4. FURIX [Concomitant]
     Active Substance: FUROSEMIDE
     Indication: CEREBRAL INFARCTION
     Dosage: 0.5 DF, DAILY DOSE
     Route: 048
     Dates: start: 20140204
  5. ESOMEZOL [Concomitant]
     Indication: CEREBRAL INFARCTION
     Dosage: 1 DF, DAILY DOSE
     Route: 048
     Dates: start: 20120817
  6. LOSARTAM [Concomitant]
     Indication: CEREBRAL INFARCTION
     Dosage: 1 DF, DAILY DOSE
     Route: 048
     Dates: start: 20131227
  7. ZACETIN [Concomitant]
     Indication: CEREBRAL INFARCTION
     Dosage: 3 DF, DAILY DOSE
     Route: 048
     Dates: start: 20140526
  8. CILOSTAZOL. [Suspect]
     Active Substance: CILOSTAZOL
     Indication: CEREBRAL INFARCTION
     Dosage: 200 MG, QD
     Route: 048
     Dates: start: 20140418
  9. CELEBREX [Concomitant]
     Active Substance: CELECOXIB
     Indication: CEREBRAL INFARCTION
     Dosage: 1 DF, DAILY DOSE
     Route: 048
     Dates: start: 20140314

REACTIONS (1)
  - Nausea [Recovered/Resolved]

NARRATIVE: CASE EVENT DATE: 20140706
